FAERS Safety Report 8255215 (Version 4)
Quarter: 2013Q2

REPORT INFORMATION
  Report Type: Report from Study
  Country: NL (occurrence: NL)
  Receive Date: 20111118
  Receipt Date: 20130426
  Transmission Date: 20140414
  Serious: Yes (Other)
  Sender: FDA-Public Use
  Company Number: NL-ROCHE-1005418

PATIENT
  Age: 49 Year
  Sex: Female
  Weight: 84.7 kg

DRUGS (7)
  1. PEG-INTERFERON ALFA 2A [Suspect]
     Indication: CHRONIC HEPATITIS C
     Route: 058
     Dates: start: 20110919, end: 20120305
  2. PEG-INTERFERON ALFA 2A [Suspect]
     Route: 058
     Dates: start: 20120312
  3. RIBAVIRIN [Suspect]
     Indication: CHRONIC HEPATITIS C
     Dosage: DATE OF LAST DOSE PRIOR TO SAE- 03-OCT-2011
     Route: 048
     Dates: start: 20110919
  4. EPOETIN BETA [Suspect]
     Indication: CHRONIC HEPATITIS C
     Dosage: DOSE : 30,000 IU/ML
     Route: 058
     Dates: start: 20111103
  5. DEPAKINE [Concomitant]
     Route: 065
     Dates: start: 20100101
  6. SEROQUEL [Concomitant]
     Route: 065
     Dates: start: 20100101
  7. CITALOPRAM [Concomitant]
     Route: 065
     Dates: start: 20100101

REACTIONS (1)
  - Pancytopenia [Recovered/Resolved]
